FAERS Safety Report 8923025 (Version 1)
Quarter: 2012Q4

REPORT INFORMATION
  Report Type: 
  Country: US (occurrence: US)
  Receive Date: 20121123
  Receipt Date: 20121123
  Transmission Date: 20130627
  Serious: Yes (Other)
  Sender: FDA-Public Use
  Company Number: US-JNJFOC-20121108368

PATIENT
  Sex: Male

DRUGS (4)
  1. KETOCONAZOLE [Suspect]
     Indication: PROSTATE CANCER METASTATIC
     Route: 065
  2. DOCETAXEL [Suspect]
     Indication: PROSTATE CANCER METASTATIC
     Dosage: for 3 consecutive weeks followed by 1-week rest period
     Route: 042
  3. HYDROCORTISONE [Suspect]
     Indication: PROSTATE CANCER METASTATIC
     Dosage: 20 mg in morning and 10 mg in evening
     Route: 065
  4. DEXAMETHASONE [Suspect]
     Indication: PROSTATE CANCER METASTATIC
     Dosage: at 12 hour and 1 hour before docetaxel infusion and 12 hours after the infusion
     Route: 048

REACTIONS (2)
  - Febrile neutropenia [Unknown]
  - Off label use [Unknown]
